FAERS Safety Report 6379363-6 (Version None)
Quarter: 2009Q3

REPORT INFORMATION
  Report Type: 
  Country: None (occurrence: None)
  Receive Date: 20090923
  Receipt Date: 20090923
  Transmission Date: 20100115
  Serious: Yes (Hospitalization)
  Sender: FDA-Public Use
  Company Number: None

PATIENT
  Age: 73 Year
  Sex: Female
  Weight: 100 kg

DRUGS (9)
  1. WARFARIN SODIUM [Suspect]
     Indication: DEEP VEIN THROMBOSIS
     Dosage: PO, QDAY
     Route: 048
     Dates: end: 20081117
  2. ENOXAPARIN SODIUM [Suspect]
     Indication: PULMONARY EMBOLISM
     Dosage: SUBQ, Q124
     Route: 058
     Dates: end: 20081117
  3. ASPIRIN [Concomitant]
  4. MORPHINE SULFATE [Concomitant]
  5. LISINOPRIL [Concomitant]
  6. TEMAZEPAM [Concomitant]
  7. LEVOTHYROXINE SODIUM [Concomitant]
  8. OXYCODONE [Concomitant]
  9. CALCIUM [Concomitant]

REACTIONS (7)
  - ACTIVATED PARTIAL THROMBOPLASTIN TIME PROLONGED [None]
  - BLOOD PRESSURE DECREASED [None]
  - HAEMOGLOBIN DECREASED [None]
  - INTERNATIONAL NORMALISED RATIO INCREASED [None]
  - PAIN IN EXTREMITY [None]
  - PELVIC PAIN [None]
  - RECTAL HAEMORRHAGE [None]
